FAERS Safety Report 5190373-7 (Version None)
Quarter: 2006Q4

REPORT INFORMATION
  Report Type: 
  Country: None (occurrence: None)
  Receive Date: 20061222
  Receipt Date: 20061212
  Transmission Date: 20070319
  Serious: Yes (Other)
  Sender: FDA-Public Use
  Company Number: CA-AVENTIS-200622708GDDC

PATIENT
  Age: 67 Year
  Sex: Female

DRUGS (1)
  1. FLAGYL [Suspect]
     Indication: SKIN INFECTION
     Route: 048
     Dates: start: 20061010, end: 20061024

REACTIONS (4)
  - CLOSTRIDIUM DIFFICILE COLITIS [None]
  - HYPOAESTHESIA [None]
  - NEUROPATHY [None]
  - SUICIDAL IDEATION [None]
